FAERS Safety Report 7206238-2 (Version None)
Quarter: 2011Q1

REPORT INFORMATION
  Report Type: 
  Country: None (occurrence: None)
  Receive Date: 20110103
  Receipt Date: 20101228
  Transmission Date: 20110831
  Serious: Yes (Death, Hospitalization)
  Sender: FDA-Public Use
  Company Number: DE-SANOFI-AVENTIS-2010SA069418

PATIENT
  Age: 72 Year
  Sex: Male
  Weight: 73 kg

DRUGS (6)
  1. NOVALGIN [Concomitant]
     Indication: FLANK PAIN
     Route: 048
  2. SPIRONOLACTONE [Concomitant]
     Route: 048
  3. JEVTANA KIT [Suspect]
     Dosage: BASED ON INTERNATIONAL PHARMACY
     Route: 041
     Dates: start: 20101014, end: 20101014
  4. TRANEXAMIC ACID [Concomitant]
     Route: 048
  5. IDEOS [Concomitant]
     Indication: METASTASES TO BONE
     Route: 048
  6. TORSEMIDE [Concomitant]
     Route: 048

REACTIONS (2)
  - CEREBRAL HAEMORRHAGE [None]
  - THROMBOCYTOPENIA [None]
